FAERS Safety Report 8811813 (Version 9)
Quarter: 2015Q2

REPORT INFORMATION
  Report Type: Spontaneous
  Country: CA (occurrence: CA)
  Receive Date: 20120927
  Receipt Date: 20150518
  Transmission Date: 20150821
  Serious: Yes (Hospitalization, Other)
  Sender: FDA-Public Use
  Company Number: CA-GLAXOSMITHKLINE-A0993580A

PATIENT
  Age: 56 Year
  Sex: Female

DRUGS (9)
  1. REVOLADE [Suspect]
     Active Substance: ELTROMBOPAG
     Indication: IMMUNE THROMBOCYTOPENIC PURPURA
     Dosage: 50 MG, QD
     Route: 065
     Dates: start: 20120814, end: 20120823
  2. VAGIFEM [Concomitant]
     Active Substance: ESTRADIOL
     Indication: PRODUCT USED FOR UNKNOWN INDICATION
     Dosage: UNK
  3. ACYCLOVIR. [Concomitant]
     Active Substance: ACYCLOVIR
     Indication: PRODUCT USED FOR UNKNOWN INDICATION
     Dosage: UNK
  4. HYDROCHLOROTHIAZIDE. [Concomitant]
     Active Substance: HYDROCHLOROTHIAZIDE
     Indication: PRODUCT USED FOR UNKNOWN INDICATION
     Dosage: UNK
  5. REVOLADE [Suspect]
     Active Substance: ELTROMBOPAG
     Dosage: 25 MG, QD
     Dates: start: 201208
  6. PLAQUENIL [Suspect]
     Active Substance: HYDROXYCHLOROQUINE SULFATE
     Indication: SYSTEMIC LUPUS ERYTHEMATOSUS
     Dosage: UNK
     Dates: end: 201411
  7. OXAZEPAM. [Concomitant]
     Active Substance: OXAZEPAM
     Indication: PRODUCT USED FOR UNKNOWN INDICATION
  8. REVOLADE [Suspect]
     Active Substance: ELTROMBOPAG
     Dosage: 50 MG, QD
  9. COUMADIN [Concomitant]
     Active Substance: WARFARIN SODIUM
     Indication: PRODUCT USED FOR UNKNOWN INDICATION
     Dosage: 12 MG, QD

REACTIONS (22)
  - Abdominal pain [Recovered/Resolved]
  - Joint swelling [Unknown]
  - Systemic lupus erythematosus [Not Recovered/Not Resolved]
  - Cerebrovascular accident [Recovering/Resolving]
  - Tachycardia [Recovering/Resolving]
  - Thrombophlebitis superficial [Recovered/Resolved]
  - Migraine [Not Recovered/Not Resolved]
  - Pain [Not Recovered/Not Resolved]
  - Headache [Recovered/Resolved]
  - Blood bilirubin increased [Unknown]
  - Ill-defined disorder [Not Recovered/Not Resolved]
  - Arthropod bite [Unknown]
  - Skin warm [Unknown]
  - Vomiting [Recovered/Resolved]
  - Platelet count decreased [Unknown]
  - Nausea [Recovered/Resolved]
  - Sjogren^s syndrome [Unknown]
  - Liver function test abnormal [Unknown]
  - Induration [Unknown]
  - Limb discomfort [Unknown]
  - Arthralgia [Not Recovered/Not Resolved]
  - Local swelling [Unknown]

NARRATIVE: CASE EVENT DATE: 201208
